FAERS Safety Report 7246078-1 (Version None)
Quarter: 2011Q1

REPORT INFORMATION
  Report Type: 
  Country: None (occurrence: None)
  Receive Date: 20110126
  Receipt Date: 20110120
  Transmission Date: 20110831
  Serious: Yes (Other)
  Sender: FDA-Public Use
  Company Number: A0809326A

PATIENT
  Age: 53 Year
  Sex: Male

DRUGS (9)
  1. CLONIDINE [Concomitant]
  2. LISINOPRIL [Concomitant]
  3. LOVASTATIN [Concomitant]
  4. REQUIP [Suspect]
     Indication: RESTLESS LEGS SYNDROME
     Dosage: .5MG PER DAY
     Route: 048
     Dates: start: 20050101
  5. COREG [Suspect]
     Dosage: 25MG TWICE PER DAY
     Route: 048
     Dates: start: 20050101
  6. NITROSTAT [Concomitant]
  7. LEVOTHYROXINE SODIUM [Concomitant]
  8. MECLIZINE [Concomitant]
     Indication: VERTIGO
     Dates: start: 20020101
  9. ASPIRIN [Concomitant]

REACTIONS (9)
  - PAIN IN EXTREMITY [None]
  - SENSATION OF HEAVINESS [None]
  - DIZZINESS [None]
  - VISUAL ACUITY REDUCED [None]
  - RASH ERYTHEMATOUS [None]
  - WEIGHT DECREASED [None]
  - DYSARTHRIA [None]
  - SEDATION [None]
  - CONTUSION [None]
